FAERS Safety Report 7235953-X (Version None)
Quarter: 2011Q1

REPORT INFORMATION
  Report Type: 
  Country: None (occurrence: None)
  Receive Date: 20110120
  Receipt Date: 20110114
  Transmission Date: 20110831
  Serious: Yes (Death)
  Sender: FDA-Public Use
  Company Number: A0906195A

PATIENT
  Age: 61 Year
  Sex: Male

DRUGS (3)
  1. BLOOD PRESSURE MEDICATION [Concomitant]
  2. ADVAIR [Suspect]
     Indication: PULMONARY FIBROSIS
     Route: 055
  3. PREDNISONE [Concomitant]

REACTIONS (1)
  - RESPIRATORY FAILURE [None]
